FAERS Safety Report 6844079-6 (Version None)
Quarter: 2010Q3

REPORT INFORMATION
  Report Type: 
  Country: None (occurrence: None)
  Receive Date: 20100715
  Receipt Date: 20100706
  Transmission Date: 20110219
  Serious: Yes (Other)
  Sender: FDA-Public Use
  Company Number: SE-PFIZER INC-2010004133

PATIENT
  Age: 75 Year
  Sex: Male

DRUGS (7)
  1. XANOR DEPOT [Suspect]
     Indication: ANXIETY DISORDER
     Dosage: 1 MG, 4X/DAY
  2. XANOR DEPOT [Suspect]
     Indication: DEPRESSION
  3. COZAAR [Concomitant]
     Indication: HYPERTENSION
     Dosage: UNK
  4. ATENOLOL [Concomitant]
     Indication: HYPERTENSION
     Dosage: UNK
  5. ESIDRIX [Concomitant]
     Indication: HYPERTENSION
     Dosage: UNK
  6. CLOMIPRAMINE [Concomitant]
     Dosage: UNK
  7. OXASCAND [Concomitant]
     Dosage: UNK

REACTIONS (8)
  - COORDINATION ABNORMAL [None]
  - DIZZINESS [None]
  - DRUG INEFFECTIVE [None]
  - DYSPNOEA [None]
  - GAIT DISTURBANCE [None]
  - MASKED FACIES [None]
  - MUSCLE RIGIDITY [None]
  - PARKINSONIAN REST TREMOR [None]
